FAERS Safety Report 9374703 (Version 2)
Quarter: 2013Q3

REPORT INFORMATION
  Report Type: Spontaneous
  Country: CO (occurrence: CO)
  Receive Date: 20130628
  Receipt Date: 20130704
  Transmission Date: 20140515
  Serious: Yes (Other)
  Sender: FDA-Public Use
  Company Number: CO-PFIZER INC-2013182343

PATIENT
  Age: 11 Year
  Sex: Male

DRUGS (4)
  1. MOTRIN [Suspect]
     Indication: ORAL PAIN
     Dosage: 800 MG, THREE TIMES PER DAY
     Route: 048
     Dates: start: 20130607, end: 201306
  2. MOTRIN [Suspect]
     Indication: STOMATITIS
  3. MOTRIN [Suspect]
     Indication: GINGIVAL OPERATION
  4. CLINDAMYCIN [Concomitant]
     Indication: GINGIVAL OPERATION
     Dosage: UNK, 4 TIMES PER DAY
     Dates: start: 20130604

REACTIONS (2)
  - Drug hypersensitivity [Recovered/Resolved]
  - Eyelid oedema [Recovered/Resolved]
